FAERS Safety Report 10277875 (Version 2)
Quarter: 2015Q1

REPORT INFORMATION
  Report Type: Report from Study
  Country: US (occurrence: US)
  Receive Date: 20140704
  Receipt Date: 20150319
  Transmission Date: 20150720
  Serious: Yes (Other)
  Sender: FDA-Public Use
  Company Number: US-BIOGENIDEC-2014BI064923

PATIENT
  Sex: Female

DRUGS (4)
  1. AVONEX [Suspect]
     Active Substance: INTERFERON BETA-1A
     Indication: MULTIPLE SCLEROSIS
     Route: 030
     Dates: start: 20130225
  2. KLONOPIN [Concomitant]
     Active Substance: CLONAZEPAM
  3. AVONEX [Suspect]
     Active Substance: INTERFERON BETA-1A
     Indication: MULTIPLE SCLEROSIS
     Route: 030
     Dates: start: 20000301
  4. NORTRIPTYLINE HCL [Concomitant]
     Active Substance: NORTRIPTYLINE HYDROCHLORIDE

REACTIONS (3)
  - Breast cancer [Recovered/Resolved]
  - T-cell lymphoma [Not Recovered/Not Resolved]
  - Neoplasm malignant [Unknown]
